FAERS Safety Report 13046395 (Version 2)
Quarter: 2017Q1

REPORT INFORMATION
  Report Type: Report from Study
  Country: CR (occurrence: CR)
  Receive Date: 20161220
  Receipt Date: 20170124
  Transmission Date: 20170428
  Serious: No
  Sender: FDA-Public Use
  Company Number: PHHY2016CR174223

PATIENT
  Age: 34 Year
  Sex: Male

DRUGS (1)
  1. GILENYA [Suspect]
     Active Substance: FINGOLIMOD HYDROCHLORIDE
     Indication: PRODUCT USED FOR UNKNOWN INDICATION
     Dosage: UNK
     Route: 065

REACTIONS (11)
  - White blood cell count decreased [Unknown]
  - Pruritus [Unknown]
  - Fall [Unknown]
  - Mobility decreased [Unknown]
  - Headache [Unknown]
  - Stress [Unknown]
  - Multiple sclerosis relapse [Unknown]
  - Nausea [Recovered/Resolved]
  - Nasopharyngitis [Unknown]
  - Feeling hot [Unknown]
  - Muscular weakness [Unknown]
